FAERS Safety Report 7699615-7 (Version None)
Quarter: 2011Q3

REPORT INFORMATION
  Report Type: 
  Country: None (occurrence: None)
  Receive Date: 20110822
  Receipt Date: 20110810
  Transmission Date: 20111222
  Serious: No
  Sender: FDA-Public Use
  Company Number: US-BIOGENIDEC-2010BI038183

PATIENT
  Sex: Male

DRUGS (1)
  1. TYSABRI [Suspect]
     Indication: MULTIPLE SCLEROSIS
     Route: 042
     Dates: start: 20070221

REACTIONS (18)
  - BLINDNESS TRANSIENT [None]
  - DIPLOPIA [None]
  - NEURALGIA [None]
  - DRUG INEFFECTIVE [None]
  - COORDINATION ABNORMAL [None]
  - MUSCLE ATROPHY [None]
  - DYSGRAPHIA [None]
  - VISUAL IMPAIRMENT [None]
  - NUCLEAR MAGNETIC RESONANCE IMAGING ABNORMAL [None]
  - ABASIA [None]
  - IRRITABILITY [None]
  - AMNESIA [None]
  - MUSCLE SPASTICITY [None]
  - FATIGUE [None]
  - MULTIPLE SCLEROSIS [None]
  - VISION BLURRED [None]
  - FALL [None]
  - GAIT DISTURBANCE [None]
